FAERS Safety Report 4729355-5 (Version None)
Quarter: 2005Q3

REPORT INFORMATION
  Report Type: 
  Country: None (occurrence: None)
  Receive Date: 20050729
  Receipt Date: 20050725
  Transmission Date: 20060218
  Serious: Yes (Death, Other)
  Sender: FDA-Public Use
  Company Number: PHBS2005BE10836

PATIENT
  Sex: Female

DRUGS (3)
  1. CHEMOTHERAPEUTICS,OTHER [Concomitant]
  2. CONTRAST MEDIA [Suspect]
  3. ZOMETA [Suspect]
     Indication: METASTASES TO BONE
     Dosage: UNK, ONCE/SINGLE
     Route: 042
     Dates: start: 20050401

REACTIONS (3)
  - BLOOD CREATININE INCREASED [None]
  - DEATH [None]
  - RENAL FAILURE ACUTE [None]
